FAERS Safety Report 5460643-3 (Version None)
Quarter: 2007Q3

REPORT INFORMATION
  Report Type: 
  Country: None (occurrence: None)
  Receive Date: 20070919
  Receipt Date: 20070907
  Transmission Date: 20080115
  Serious: Yes (Other)
  Sender: FDA-Public Use
  Company Number: FR-PFIZER INC-2007076221

PATIENT
  Age: 57 Year
  Sex: Male

DRUGS (2)
  1. SUTENT [Suspect]
     Indication: METASTATIC RENAL CELL CARCINOMA
  2. ALL OTHER THERAPEUTIC PRODUCTS [Concomitant]

REACTIONS (4)
  - ASTHENIA [None]
  - FEBRILE BONE MARROW APLASIA [None]
  - NEUTROPENIA [None]
  - THROMBOCYTOPENIA [None]
